FAERS Safety Report 9181518 (Version 2)
Quarter: 2013Q2

REPORT INFORMATION
  Report Type: Spontaneous
  Country: US (occurrence: US)
  Receive Date: 20130322
  Receipt Date: 20130627
  Transmission Date: 20140414
  Serious: Yes (Other)
  Sender: FDA-Public Use
  Company Number: US-AMGEN-USASP2013017341

PATIENT
  Age: 70 Year
  Sex: Female

DRUGS (8)
  1. PROLIA [Suspect]
     Indication: OSTEOPOROSIS POSTMENOPAUSAL
     Dosage: UNK
  2. CALCIUM WITH VITAMIN D             /00944201/ [Concomitant]
  3. TOPROL [Concomitant]
  4. CYMBALTA [Concomitant]
  5. RANITIDINE [Concomitant]
  6. SPIRONOLACTONE AND HYDROCHLOROTHIAZIDE [Concomitant]
  7. MOBIC [Concomitant]
  8. SYNTHROID [Concomitant]

REACTIONS (1)
  - Osteonecrosis of jaw [Unknown]
